FAERS Safety Report 5444603-4 (Version None)
Quarter: 2007Q3

REPORT INFORMATION
  Report Type: 
  Country: None (occurrence: None)
  Receive Date: 20070831
  Receipt Date: 20070613
  Transmission Date: 20080115
  Serious: Yes (Hospitalization)
  Sender: FDA-Public Use
  Company Number: 8025101

PATIENT
  Age: 55 Year
  Sex: Male

DRUGS (10)
  1. FUROSEMIDE [Suspect]
  2. THEOPHYLLINE [Suspect]
  3. ENALAPRIL MALEATE [Suspect]
  4. MIRTAZAPINE [Suspect]
  5. SERTRALINE [Suspect]
  6. DIAZEPAM [Concomitant]
  7. LISINOPRIL [Suspect]
  8. OXAZEPAM [Concomitant]
  9. RAMIPRIL [Suspect]
  10. REBOXETINE [Suspect]

REACTIONS (5)
  - DEPRESSION [None]
  - DRUG TOXICITY [None]
  - ILEUS PARALYTIC [None]
  - POISONING [None]
  - PSYCHOTIC DISORDER [None]
